FAERS Safety Report 5903374-5 (Version None)
Quarter: 2008Q3

REPORT INFORMATION
  Report Type: 
  Country: None (occurrence: None)
  Receive Date: 20080930
  Receipt Date: 20080926
  Transmission Date: 20090109
  Serious: Yes (Hospitalization)
  Sender: FDA-Public Use
  Company Number: US-ASTRAZENECA-2008UW20580

PATIENT
  Age: 55 Year
  Sex: Male

DRUGS (7)
  1. SEROQUEL [Suspect]
     Route: 048
  2. DEPAKOTE [Concomitant]
     Dosage: 200 MG
  3. LAMICTAL [Concomitant]
  4. KLONOPIN [Concomitant]
  5. CELEBREX [Concomitant]
  6. THYROXIN [Concomitant]
  7. TRICOR [Concomitant]

REACTIONS (2)
  - KNEE OPERATION [None]
  - PANCREATITIS [None]
